FAERS Safety Report 4993189-7 (Version None)
Quarter: 2006Q1

REPORT INFORMATION
  Report Type: 
  Country: None (occurrence: None)
  Receive Date: 20060313
  Receipt Date: 20051110
  Transmission Date: 20060701
  Serious: No
  Sender: FDA-Public Use
  Company Number: 2005-BP-19069BP

PATIENT
  Age: 78 Year
  Sex: Male

DRUGS (12)
  1. SPIRIVA [Suspect]
     Indication: CHRONIC OBSTRUCTIVE PULMONARY DISEASE
     Dosage: 18 MCG (18 MCG, 1 IN 1 D), IH
     Route: 055
     Dates: start: 20050701
  2. ADVAIR (SERETIDE) [Concomitant]
  3. ALBUTEROL SULFATE AUTOHALER [Concomitant]
  4. NEXIUM [Concomitant]
  5. NASALIDE [Concomitant]
  6. METFORMIN [Concomitant]
  7. NAPROXEN [Concomitant]
  8. GLUCOSAMINE (GLUCOSAMINE) [Concomitant]
  9. CHONDROITIN (GLUCOSAMINE W/CHONDROITIN SULF./MANGAN./VIT C) [Concomitant]
  10. ASPIRIN [Concomitant]
  11. MULTIVITAMIN [Concomitant]
  12. HYTRIN [Concomitant]

REACTIONS (4)
  - CONSTIPATION [None]
  - DRY MOUTH [None]
  - INSOMNIA [None]
  - URINARY TRACT DISORDER [None]
